FAERS Safety Report 11156846 (Version 1)
Quarter: 2015Q2

REPORT INFORMATION
  Report Type: Spontaneous
  Country: US (occurrence: US)
  Receive Date: 20150602
  Receipt Date: 20150602
  Transmission Date: 20150821
  Serious: No
  Sender: FDA-Public Use
  Company Number: US-MYLANLABS-2015M1015196

PATIENT
  Age: 44 Year
  Sex: Female

DRUGS (2)
  1. CAPECITABINE TABLETS USP [Suspect]
     Active Substance: CAPECITABINE
     Dosage: 1000 MG, BID
     Route: 048
     Dates: start: 20150501
  2. OXYCODONE [Concomitant]
     Active Substance: OXYCODONE
     Dosage: UNK

REACTIONS (2)
  - Incorrect dosage administered [Recovered/Resolved]
  - No adverse event [Recovered/Resolved]

NARRATIVE: CASE EVENT DATE: 20150501
